FAERS Safety Report 9391801 (Version 1)
Quarter: 2013Q3

REPORT INFORMATION
  Report Type: Spontaneous
  Country: US (occurrence: None)
  Receive Date: 20130705
  Receipt Date: 20130705
  Transmission Date: 20140515
  Serious: Yes (Hospitalization)
  Sender: FDA-Public Use
  Company Number: ACO_37120_2013

PATIENT
  Age: 46 Year
  Sex: Female

DRUGS (11)
  1. AMPYRA (DALFAMPRIDINE) TABLET, 10MG [Suspect]
     Indication: PRODUCT USED FOR UNKNOWN INDICATION
     Route: 048
     Dates: start: 201207
  2. PREDNISONE (PREDNISONE) [Concomitant]
  3. LYRICA (PREGABAIN) [Concomitant]
  4. DILTIAZEM (DILITIAZEM HYDROCHLORIDE) [Concomitant]
  5. GABAPENTIN (GEBAPENTIN) [Concomitant]
  6. METFORMIN (METFORMIN  HYDROCHLORIDE) [Concomitant]
  7. LISINOPRIL (LISINOPRIL) [Concomitant]
  8. TIZANIDINE HYDROCHLORIDE (TZANIDIINE HYDROCHLORIDE) [Concomitant]
  9. ALBUTEROL (SALBUTAMOL SULFATE) [Concomitant]
  10. OXYCODONE AND ACETAMINOPHEN (OXYCODONE HYDROCHLORIDE, PARACETAMOL) [Concomitant]
  11. KLONOPIN (CLONAZEPAM) [Concomitant]

REACTIONS (1)
  - Hip surgery [None]
